FAERS Safety Report 8142243 (Version 3)
Quarter: 2013Q1

REPORT INFORMATION
  Report Type: Spontaneous
  Country: US (occurrence: US)
  Receive Date: 20110919
  Receipt Date: 20130213
  Transmission Date: 20140127
  Serious: Yes (Other)
  Sender: FDA-Public Use
  Company Number: US-ROCHE-802153

PATIENT
  Age: 16 Year
  Sex: Male
  Weight: 101.7 kg

DRUGS (1)
  1. ACCUTANE [Suspect]
     Indication: ACNE
     Route: 065
     Dates: start: 19940908, end: 19950214

REACTIONS (8)
  - Colitis ulcerative [Unknown]
  - Inflammatory bowel disease [Unknown]
  - Depression [Unknown]
  - Injury [Unknown]
  - Rectal polyp [Unknown]
  - Irritable bowel syndrome [Unknown]
  - Dry skin [Unknown]
  - Epistaxis [Unknown]
